FAERS Safety Report 18818468 (Version 1)
Quarter: 2021Q1

REPORT INFORMATION
  Report Type: Spontaneous
  Country: GB (occurrence: GB)
  Receive Date: 20210202
  Receipt Date: 20210202
  Transmission Date: 20210419
  Serious: Yes (Other)
  Sender: FDA-Public Use
  Company Number: GB-BRISTOL-MYERS SQUIBB COMPANY-BMS-2021-008083

PATIENT
  Age: 71 Year
  Sex: Male
  Weight: 73 kg

DRUGS (13)
  1. ATORVASTATIN [Concomitant]
     Active Substance: ATORVASTATIN
     Indication: ILL-DEFINED DISORDER
     Dosage: TAKE ONE DAILY
     Route: 065
     Dates: start: 20150115
  2. FUROSEMIDE. [Concomitant]
     Active Substance: FUROSEMIDE
     Indication: ILL-DEFINED DISORDER
     Dosage: TAKE ONE EACH MORNING
     Route: 065
     Dates: start: 20190515
  3. SALBUTAMOL [Concomitant]
     Active Substance: ALBUTEROL
     Indication: ILL-DEFINED DISORDER
     Dosage: INHALE 1 DOSE AS NEEDED UP TO 4 TIMES/DAY
     Route: 065
     Dates: start: 20180704
  4. SILDENAFIL. [Concomitant]
     Active Substance: SILDENAFIL
     Indication: ILL-DEFINED DISORDER
     Dosage: TAKE 1?2 TABLETS APPROXIMATELY 1 HOUR BEFORE TH...
     Route: 065
     Dates: start: 20191002
  5. AVAMYS [Concomitant]
     Active Substance: FLUTICASONE FUROATE
     Indication: ILL-DEFINED DISORDER
     Dosage: USE ONCE DAILY
     Dates: start: 20201127, end: 20201128
  6. RIVAROXABAN [Concomitant]
     Active Substance: RIVAROXABAN
     Indication: ILL-DEFINED DISORDER
     Dosage: TAKE ONE TABLET DAILY WITH EVENING MEAL
     Route: 065
     Dates: start: 20210126
  7. APIXABAN [Suspect]
     Active Substance: APIXABAN
     Indication: ILL-DEFINED DISORDER
     Route: 065
     Dates: start: 20201102
  8. LAXIDO [Concomitant]
     Active Substance: POLYETHYLENE GLYCOL 3350\POTASSIUM CHLORIDE\SODIUM BICARBONATE\SODIUM CHLORIDE
     Indication: ILL-DEFINED DISORDER
     Dosage: TAKE ONE SACHET EVERY 6 HOURS WHEN REQUIRED. MA...
     Route: 065
     Dates: start: 20180222
  9. TRELEGY ELLIPTA [Concomitant]
     Active Substance: FLUTICASONE FUROATE\UMECLIDINIUM BROMIDE\VILANTEROL TRIFENATATE
     Indication: ILL-DEFINED DISORDER
     Dosage: USE ONE SUCK ONCE DAILY IN THE MORNING
     Route: 065
     Dates: start: 20180704
  10. VENTOLIN [Concomitant]
     Active Substance: ALBUTEROL SULFATE
     Indication: ILL-DEFINED DISORDER
     Dosage: INHALE TWO PUFFS EVERY 4 HOURS WHEN REQUIRED. M...
     Route: 065
     Dates: start: 20140403
  11. CARBOCISTEINE [Concomitant]
     Active Substance: CARBOCYSTEINE
     Indication: ILL-DEFINED DISORDER
     Dosage: TAKE TWO CAPSULES THREE TIMES A DAY
     Route: 065
     Dates: start: 20140506
  12. LANSOPRAZOLE. [Concomitant]
     Active Substance: LANSOPRAZOLE
     Indication: ILL-DEFINED DISORDER
     Dosage: TAKE ONE ONCE DAILY
     Route: 065
     Dates: start: 20201127, end: 20201225
  13. AMLODIPINE [Concomitant]
     Active Substance: AMLODIPINE BESYLATE
     Indication: ILL-DEFINED DISORDER
     Dosage: TAKE ONE DAILY
     Route: 065
     Dates: start: 20201008, end: 20201102

REACTIONS (1)
  - Rhinitis [Unknown]

NARRATIVE: CASE EVENT DATE: 20201102
